FAERS Safety Report 9301409 (Version 1)
Quarter: 2013Q2

REPORT INFORMATION
  Report Type: Spontaneous
  Country: US (occurrence: US)
  Receive Date: 20130521
  Receipt Date: 20130521
  Transmission Date: 20140414
  Serious: Yes (Hospitalization)
  Sender: FDA-Public Use
  Company Number: US-ABBOTT-13P-163-1090875-00

PATIENT
  Sex: Female
  Weight: 54.48 kg

DRUGS (5)
  1. SYNTHROID [Suspect]
     Indication: HYPOTHYROIDISM
  2. XALATAN [Concomitant]
     Indication: GLAUCOMA
     Dosage: EYE DROPS
  3. BIOTIN [Concomitant]
     Indication: HAIR DISORDER
  4. BIOTIN [Concomitant]
     Indication: SKIN DISORDER
  5. BIOTIN [Concomitant]
     Indication: NAIL DISORDER

REACTIONS (10)
  - Road traffic accident [Recovered/Resolved]
  - Upper limb fracture [Recovered/Resolved]
  - Lower limb fracture [Recovered/Resolved]
  - Alopecia [Not Recovered/Not Resolved]
  - Weight increased [Not Recovered/Not Resolved]
  - Insomnia [Not Recovered/Not Resolved]
  - Feeling cold [Not Recovered/Not Resolved]
  - Skin disorder [Recovering/Resolving]
  - Dermatitis contact [Recovering/Resolving]
  - Thyroid neoplasm [Unknown]
